FAERS Safety Report 9681387 (Version 1)
Quarter: 2013Q4

REPORT INFORMATION
  Report Type: Spontaneous
  Country: IT (occurrence: IT)
  Receive Date: 20131111
  Receipt Date: 20131111
  Transmission Date: 20140711
  Serious: Yes (Death, Hospitalization)
  Sender: FDA-Public Use
  Company Number: IT-TEVA-442443ISR

PATIENT
  Age: 65 Year
  Sex: Male
  Weight: 94 kg

DRUGS (2)
  1. CARBOPLATINO TEVA [Suspect]
     Indication: NON-SMALL CELL LUNG CANCER STAGE IIIB
     Dosage: 250 MG/M2 DAILY;
     Route: 042
     Dates: start: 20130426, end: 20130808
  2. ALIMTA [Suspect]
     Indication: NON-SMALL CELL LUNG CANCER STAGE IIIB
     Dosage: 500 MG/M2 DAILY; CONCENTRATE FOR SOLUTION FOR INFUSION. DAILY DOSE: 500 MG/M2
     Route: 042
     Dates: start: 20130426, end: 20130808

REACTIONS (5)
  - Myocardial infarction [Fatal]
  - Diarrhoea [Unknown]
  - Hyperpyrexia [Unknown]
  - Pancytopenia [Unknown]
  - Renal failure [Unknown]
